FAERS Safety Report 4978426-7 (Version None)
Quarter: 2006Q1

REPORT INFORMATION
  Report Type: 
  Country: None (occurrence: None)
  Receive Date: 20060227
  Receipt Date: 20050221
  Transmission Date: 20060701
  Serious: Yes (Other)
  Sender: FDA-Public Use
  Company Number: WAES 0502USA02631

PATIENT
  Age: 79 Year
  Sex: Male
  Weight: 108.8633 kg

DRUGS (4)
  1. ZOCOR [Suspect]
     Indication: BLOOD CHOLESTEROL INCREASED
     Dosage: 40 MG/DAILY/PO
     Route: 048
     Dates: start: 20050110, end: 20050214
  2. COUMADIN [Concomitant]
  3. AMIODARONE HYDROCHLORIDE [Concomitant]
  4. DIURETIC [Concomitant]

REACTIONS (2)
  - MUSCULAR WEAKNESS [None]
  - MYALGIA [None]
